FAERS Safety Report 11365522 (Version 2)
Quarter: 2015Q3

REPORT INFORMATION
  Report Type: Report from Study
  Country: BZ (occurrence: BZ)
  Receive Date: 20150811
  Receipt Date: 20150908
  Transmission Date: 20151125
  Serious: No
  Sender: FDA-Public Use
  Company Number: BZ-GLENMARK PHARMACEUTICALS INC, USA.-2015GMK018593

PATIENT
  Age: 17 Year
  Sex: Female
  Weight: 74.38 kg

DRUGS (5)
  1. BLINDED BENZOYL PEROXIDE, CLINDAMYCIN PHOSPHATE [Suspect]
     Active Substance: BENZOYL PEROXIDE\CLINDAMYCIN PHOSPHATE
     Indication: ACNE
     Dosage: UNK
     Route: 061
     Dates: start: 20150627, end: 20150714
  2. PLACEBO [Suspect]
     Active Substance: UNSPECIFIED INGREDIENT
     Indication: ACNE
     Dosage: UNK
     Route: 061
     Dates: start: 20150627, end: 20150714
  3. BLINDED BENZOYL PEROXIDE/ CLINDAMYCIN PHOSPHATE [Suspect]
     Active Substance: BENZOYL PEROXIDE\CLINDAMYCIN PHOSPHATE
     Indication: ACNE
     Dosage: UNK
     Route: 061
     Dates: start: 20150627, end: 20150714
  4. VENTOLIN [Concomitant]
     Active Substance: ALBUTEROL SULFATE
     Indication: ASTHMA
     Dosage: 200 MCG, QD
     Dates: start: 1998
  5. SPERMICIDE [Concomitant]
     Indication: CONTRACEPTION
     Dosage: 1 APPLICATION, PRN
     Route: 067
     Dates: start: 20150627, end: 20150728

REACTIONS (1)
  - Pregnancy [Not Recovered/Not Resolved]

NARRATIVE: CASE EVENT DATE: 201507
